FAERS Safety Report 14047425 (Version 1)
Quarter: 2017Q4

REPORT INFORMATION
  Report Type: Other
  Country: FR (occurrence: FR)
  Receive Date: 20171005
  Receipt Date: 20171005
  Transmission Date: 20180321
  Serious: Yes (Life-Threatening, Hospitalization)
  Sender: FDA-Public Use
  Company Number: FR-CELLTRION HEALTHCARE HUNGARY KFT-2017FR013246

PATIENT

DRUGS (4)
  1. INFLECTRA [Suspect]
     Active Substance: INFLIXIMAB-DYYB
     Dosage: 140 MG, SINGLE
     Route: 041
     Dates: start: 20170905, end: 20170905
  2. INFLECTRA [Suspect]
     Active Substance: INFLIXIMAB-DYYB
     Indication: SPONDYLOARTHROPATHY
     Dosage: UNK, CYCLIC
     Route: 041
     Dates: start: 201703
  3. TOPIRAMATE. [Concomitant]
     Active Substance: TOPIRAMATE
  4. IZALGI [Concomitant]
     Active Substance: ACETAMINOPHEN\OPIUM

REACTIONS (1)
  - Angioedema [Recovering/Resolving]

NARRATIVE: CASE EVENT DATE: 20170905
